FAERS Safety Report 9897889 (Version 1)
Quarter: 2014Q1

REPORT INFORMATION
  Report Type: Spontaneous
  Country: GB (occurrence: GB)
  Receive Date: 20140214
  Receipt Date: 20140214
  Transmission Date: 20141002
  Serious: Yes (Other)
  Sender: FDA-Public Use
  Company Number: GB-009507513-1402GBR006999

PATIENT
  Age: 48 Year
  Sex: Male

DRUGS (4)
  1. SITAGLIPTIN PHOSPHATE [Suspect]
     Dosage: 50 MG, QD
     Route: 048
     Dates: start: 20140117
  2. METFORMIN [Concomitant]
     Dosage: 500 MG, QD
     Route: 048
  3. RAMIPRIL [Concomitant]
     Dosage: 5 MG, QD
     Route: 048
  4. SIMVASTATIN [Concomitant]
     Dosage: 10 MG, QD
     Route: 048

REACTIONS (4)
  - Inflammation [Not Recovered/Not Resolved]
  - Local swelling [Not Recovered/Not Resolved]
  - Joint swelling [Not Recovered/Not Resolved]
  - Rash [Not Recovered/Not Resolved]
